FAERS Safety Report 21466952 (Version 1)
Quarter: 2022Q4

REPORT INFORMATION
  Report Type: Spontaneous
  Country: US (occurrence: None)
  Receive Date: 20221017
  Receipt Date: 20221017
  Transmission Date: 20230113
  Serious: Yes (Disabling)
  Sender: FDA-Public Use
  Company Number: None

PATIENT
  Age: 68 Year
  Sex: Female
  Weight: 56.25 kg

DRUGS (27)
  1. CARVEDILOL [Suspect]
     Active Substance: CARVEDILOL
     Indication: Congestive cardiomyopathy
  2. AZELASTINE [Concomitant]
     Active Substance: AZELASTINE
  3. UNSPECIFIED INGREDIENT [Concomitant]
     Active Substance: UNSPECIFIED INGREDIENT
  4. BECLOMETHASONE [Concomitant]
     Active Substance: BECLOMETHASONE
  5. dipropionate [Concomitant]
  6. actuation inhaler [Concomitant]
  7. QVAR REDIHALER HFA [Concomitant]
  8. CETIRIZINE [Concomitant]
     Active Substance: CETIRIZINE HYDROCHLORIDE
  9. ZyrTEC [Concomitant]
  10. DICLOFENAC [Concomitant]
     Active Substance: DICLOFENAC
  11. epolamine [Concomitant]
  12. FLECTOR [Concomitant]
     Active Substance: DICLOFENAC EPOLAMINE
  13. ESTRADIOL [Concomitant]
     Active Substance: ESTRADIOL
  14. FARXIGA [Concomitant]
     Active Substance: DAPAGLIFLOZIN PROPANEDIOL
  15. FLUTICASONE [Concomitant]
     Active Substance: FLUTICASONE
  16. PROPIONATE [Concomitant]
  17. FLONASE [Concomitant]
     Active Substance: FLUTICASONE PROPIONATE
  18. ipratropium inhaler [Concomitant]
  19. ATROVENT HFA [Concomitant]
     Active Substance: IPRATROPIUM BROMIDE
  20. LEVOTHYROXINE [Concomitant]
     Active Substance: LEVOTHYROXINE
  21. SYNTHROID [Concomitant]
     Active Substance: LEVOTHYROXINE SODIUM
  22. MEXILETINE [Concomitant]
     Active Substance: MEXILETINE
  23. MEXITIL [Concomitant]
     Active Substance: MEXILETINE HYDROCHLORIDE
  24. NEBIVOLOL [Concomitant]
     Active Substance: NEBIVOLOL
  25. BYSTOLIC PACERONE [Concomitant]
  26. ICD- pacemaker [Concomitant]
  27. defibrillator [Concomitant]

REACTIONS (3)
  - Dizziness [None]
  - Dizziness [None]
  - Product substitution issue [None]

NARRATIVE: CASE EVENT DATE: 20090110
